FAERS Safety Report 24970660 (Version 4)
Quarter: 2025Q3

REPORT INFORMATION
  Report Type: Other
  Country: US (occurrence: US)
  Receive Date: 20250214
  Receipt Date: 20250919
  Transmission Date: 20251021
  Serious: No
  Sender: TRAVERE THERAPEUTICS
  Company Number: US-TRAVERE-2025TVT00195

PATIENT
  Age: 71 Year
  Sex: Male

DRUGS (14)
  1. FILSPARI [Suspect]
     Active Substance: SPARSENTAN
     Indication: IgA nephropathy
     Route: 048
     Dates: start: 20230317, end: 20250423
  2. FILSPARI [Suspect]
     Active Substance: SPARSENTAN
     Indication: Chronic kidney disease
  3. FILSPARI [Suspect]
     Active Substance: SPARSENTAN
     Indication: Haematuria
  4. TARPEYO [Concomitant]
     Active Substance: BUDESONIDE
  5. CARVEDILOL [Concomitant]
     Active Substance: CARVEDILOL
  6. AMLODIPINE [Concomitant]
     Active Substance: AMLODIPINE BESYLATE
  7. EZETIMIBE [Concomitant]
     Active Substance: EZETIMIBE
  8. ALLOPURINOL [Concomitant]
     Active Substance: ALLOPURINOL
  9. FLAXSEED [Concomitant]
     Active Substance: FLAX SEED
  10. FUROSEMIDE [Concomitant]
     Active Substance: FUROSEMIDE
  11. IMIQUIMOD [Concomitant]
     Active Substance: IMIQUIMOD
  12. IRBESARTAN [Concomitant]
     Active Substance: IRBESARTAN
  13. VITAMINS [Concomitant]
     Active Substance: VITAMINS
  14. VITAMIN D3 [Concomitant]
     Active Substance: CHOLECALCIFEROL

REACTIONS (1)
  - Hepatic enzyme increased [None]
